FAERS Safety Report 5255215-X (Version None)
Quarter: 2007Q1

REPORT INFORMATION
  Report Type: 
  Country: None (occurrence: None)
  Receive Date: 20070305
  Receipt Date: 20070226
  Transmission Date: 20070707
  Serious: Yes (Hospitalization)
  Sender: FDA-Public Use
  Company Number: 2007AP00013

PATIENT
  Age: 19172 Day
  Sex: Male

DRUGS (6)
  1. IRESSA [Suspect]
     Indication: NON-SMALL CELL LUNG CANCER
     Route: 048
     Dates: start: 20061108, end: 20061123
  2. IRESSA [Suspect]
     Route: 048
     Dates: start: 20061129
  3. METFORMIN HCL [Concomitant]
     Indication: DIABETES MELLITUS
     Route: 048
     Dates: start: 20061106
  4. ELKEN [Concomitant]
  5. VITACOR PLUS [Concomitant]
     Dates: start: 20061201
  6. VITA C FORTE [Concomitant]
     Dates: start: 20061201

REACTIONS (2)
  - ALANINE AMINOTRANSFERASE INCREASED [None]
  - BLOOD ALKALINE PHOSPHATASE INCREASED [None]
